FAERS Safety Report 6145299-9 (Version None)
Quarter: 2009Q2

REPORT INFORMATION
  Report Type: 
  Country: None (occurrence: None)
  Receive Date: 20090406
  Receipt Date: 20090406
  Transmission Date: 20091009
  Serious: Yes (Hospitalization)
  Sender: FDA-Public Use
  Company Number: US-GENENTECH-265701

PATIENT
  Age: 59 Year
  Sex: Female

DRUGS (23)
  1. RITUXIMAB [Suspect]
     Indication: NON-HODGKIN'S LYMPHOMA
     Dosage: 375 MG/M2, UNK
     Route: 042
     Dates: start: 20070904
  2. CYCLOPHOSPHAMIDE [Suspect]
     Indication: B-CELL LYMPHOMA
     Dosage: 300 MG/M2, UNK
     Route: 042
     Dates: start: 20070905
  3. MESNA [Suspect]
     Indication: B-CELL LYMPHOMA
     Dosage: 600 MG/M2, UNK
     Route: 042
     Dates: start: 20070905
  4. DOXORUBICIN HCL [Suspect]
     Indication: B-CELL LYMPHOMA
     Dosage: 50 MG/M2, UNK
     Route: 042
     Dates: start: 20070908
  5. VINCRISTINE [Suspect]
     Indication: B-CELL LYMPHOMA
     Dosage: 1.4 MG/M2, UNK
     Route: 042
     Dates: start: 20070908
  6. DEXAMETHASONE [Suspect]
     Indication: B-CELL LYMPHOMA
     Dosage: 40 MG, UNK
     Route: 048
     Dates: start: 20070905
  7. OXYCODONE HCL [Concomitant]
     Indication: DRUG USE FOR UNKNOWN INDICATION
  8. PHENERGAN [Concomitant]
     Indication: DRUG USE FOR UNKNOWN INDICATION
  9. PROTONIX [Concomitant]
     Indication: DRUG USE FOR UNKNOWN INDICATION
  10. TRIAMCINOLONE [Concomitant]
     Indication: DRUG USE FOR UNKNOWN INDICATION
  11. VALTREX [Concomitant]
     Indication: DRUG USE FOR UNKNOWN INDICATION
  12. ATIVAN [Concomitant]
     Indication: DRUG USE FOR UNKNOWN INDICATION
  13. AUGMENTIN '125' [Concomitant]
     Indication: DRUG USE FOR UNKNOWN INDICATION
  14. BENADRYL [Concomitant]
     Indication: DRUG USE FOR UNKNOWN INDICATION
  15. CALTRATE [Concomitant]
     Indication: DRUG USE FOR UNKNOWN INDICATION
  16. COLACE [Concomitant]
     Indication: DRUG USE FOR UNKNOWN INDICATION
  17. DARVON [Concomitant]
     Indication: DRUG USE FOR UNKNOWN INDICATION
  18. DEXAMETHASONE [Concomitant]
     Indication: DRUG USE FOR UNKNOWN INDICATION
  19. EPIVIR [Concomitant]
     Indication: DRUG USE FOR UNKNOWN INDICATION
  20. FLUCONAZOLE [Concomitant]
     Indication: DRUG USE FOR UNKNOWN INDICATION
  21. LOVENOX [Concomitant]
  22. NEUPOGEN [Concomitant]
     Indication: DRUG USE FOR UNKNOWN INDICATION
  23. NORVASC [Concomitant]
     Indication: DRUG USE FOR UNKNOWN INDICATION
     Dosage: UNK

REACTIONS (1)
  - FEBRILE NEUTROPENIA [None]
